FAERS Safety Report 7132553-7 (Version None)
Quarter: 2010Q4

REPORT INFORMATION
  Report Type: 
  Country: None (occurrence: None)
  Receive Date: 20101202
  Receipt Date: 20101122
  Transmission Date: 20110411
  Serious: Yes (Death, Other)
  Sender: FDA-Public Use
  Company Number: PHHY2010JP80157

PATIENT
  Sex: Male

DRUGS (10)
  1. ZOLEDRONATE T29581+ [Suspect]
     Indication: METASTASES TO BONE
     Dosage: 4MG (EVERY 3 TO 4 WEEKS)
     Route: 041
     Dates: start: 20080318, end: 20100323
  2. ESTRACYT [Concomitant]
     Dosage: 2 DF, UNK
     Route: 048
     Dates: start: 20070619, end: 20100902
  3. 8-HOUR BAYER [Concomitant]
     Dosage: 100 MG, UNK
     Route: 048
     Dates: start: 20070619, end: 20090318
  4. TAMSULOSIN HCL [Concomitant]
     Dosage: 0.2 MG, UNK
     Route: 048
     Dates: start: 20071207, end: 20100902
  5. DECADRON [Concomitant]
     Dosage: 1 MG, UNK
     Route: 048
     Dates: start: 20070720, end: 20090318
  6. GASTER [Concomitant]
     Dosage: 20 MG, UNK
     Route: 048
     Dates: start: 20071207, end: 20090318
  7. LOXONIN [Concomitant]
     Dosage: 3 DF, UNK
     Route: 048
     Dates: start: 20080530, end: 20090318
  8. CALCIUM LACTATE [Concomitant]
     Dosage: 3 G, UNK
     Route: 048
     Dates: start: 20080408, end: 20100902
  9. GASLON [Concomitant]
     Dosage: 4 MG, UNK
     Route: 048
     Dates: start: 20090408, end: 20100902
  10. OMEPRAL [Concomitant]
     Dosage: 20 MG, UNK
     Route: 048
     Dates: start: 20090401, end: 20100902

REACTIONS (4)
  - COMPLETED SUICIDE [None]
  - DEHYDRATION [None]
  - RENAL IMPAIRMENT [None]
  - URINARY RETENTION [None]
